FAERS Safety Report 16382348 (Version 2)
Quarter: 2019Q3

REPORT INFORMATION
  Report Type: Report from Study
  Country: CA (occurrence: CA)
  Receive Date: 20190603
  Receipt Date: 20190802
  Transmission Date: 20191004
  Serious: Yes (Death, Hospitalization)
  Sender: FDA-Public Use
  Company Number: CA-EMD SERONO-9095207

PATIENT
  Sex: Female

DRUGS (1)
  1. REBIF [Suspect]
     Active Substance: INTERFERON BETA-1A
     Indication: PRODUCT USED FOR UNKNOWN INDICATION
     Dosage: REBIF MANUAL SYRINGE
     Route: 058
     Dates: start: 20020521

REACTIONS (2)
  - Death [Fatal]
  - Fall [Not Recovered/Not Resolved]

NARRATIVE: CASE EVENT DATE: 2019
